FAERS Safety Report 20748511 (Version 1)
Quarter: 2022Q2

REPORT INFORMATION
  Report Type: Spontaneous
  Country: JP (occurrence: JP)
  Receive Date: 20220426
  Receipt Date: 20220426
  Transmission Date: 20220720
  Serious: Yes (Hospitalization)
  Sender: FDA-Public Use
  Company Number: JP-JNJFOC-A-CH2016-134524

PATIENT
  Age: 81 Year
  Sex: Female

DRUGS (11)
  1. OPSUMIT [Suspect]
     Active Substance: MACITENTAN
     Indication: Pulmonary arterial hypertension
     Dosage: 10 MG, OD
     Route: 048
     Dates: start: 20151217
  2. OPSUMIT [Suspect]
     Active Substance: MACITENTAN
     Indication: Pulmonary arterial hypertension
  3. ADCIRCA [Concomitant]
     Active Substance: TADALAFIL
     Indication: Pulmonary arterial hypertension
     Route: 048
     Dates: start: 20130307
  4. BERAPROST SODIUM [Concomitant]
     Active Substance: BERAPROST SODIUM
     Indication: Pulmonary arterial hypertension
     Dates: start: 20090401
  5. DIOVAN [Concomitant]
     Active Substance: VALSARTAN
     Indication: Hypertension
     Route: 048
     Dates: start: 20131110
  6. WARFARIN [Concomitant]
     Active Substance: WARFARIN
     Indication: Pulmonary arterial hypertension
     Route: 048
     Dates: start: 20071128
  7. REVATIO [Concomitant]
     Active Substance: SILDENAFIL CITRATE
     Indication: Pulmonary arterial hypertension
     Route: 048
     Dates: start: 20090401, end: 20130306
  8. OXYGEN [Concomitant]
     Active Substance: OXYGEN
     Route: 055
  9. SPIRONOLACTONE [Concomitant]
     Active Substance: SPIRONOLACTONE
     Indication: Oedema
     Route: 048
     Dates: start: 20160331
  10. SPIRONOLACTONE [Concomitant]
     Active Substance: SPIRONOLACTONE
     Route: 048
  11. SODIUM FERROUS CITRATE [Concomitant]
     Active Substance: SODIUM FERROUS CITRATE
     Indication: Anaemia
     Route: 048

REACTIONS (4)
  - Pneumonia aspiration [Recovered/Resolved]
  - White blood cell count increased [Recovered/Resolved]
  - Oedema [Recovering/Resolving]
  - Anaemia [Recovering/Resolving]

NARRATIVE: CASE EVENT DATE: 20160126
